FAERS Safety Report 8149577-3 (Version None)
Quarter: 2012Q1

REPORT INFORMATION
  Report Type: 
  Country: None (occurrence: None)
  Receive Date: 20120218
  Receipt Date: 20111115
  Transmission Date: 20120608
  Serious: No
  Sender: FDA-Public Use
  Company Number: US-ALLERGAN-1108625US

PATIENT
  Age: 35 Year
  Sex: Female
  Weight: 135 kg

DRUGS (4)
  1. BOTOX COSMETIC [Suspect]
     Dosage: UNK
     Dates: start: 20060101, end: 20060101
  2. FLONASE [Concomitant]
     Indication: SINUS HEADACHE
  3. XANAX [Concomitant]
     Indication: ANXIETY
     Dosage: UNK
  4. BOTOX COSMETIC [Suspect]
     Indication: SKIN WRINKLING
     Dosage: 39 UNITS, SINGLE
     Route: 030
     Dates: start: 20110624, end: 20110624

REACTIONS (9)
  - INFLUENZA [None]
  - EYE PAIN [None]
  - VISION BLURRED [None]
  - BACK PAIN [None]
  - SINUS HEADACHE [None]
  - ANXIETY [None]
  - HYPERAESTHESIA [None]
  - HEADACHE [None]
  - NAUSEA [None]
